FAERS Safety Report 7598680-5 (Version None)
Quarter: 2011Q3

REPORT INFORMATION
  Report Type: 
  Country: None (occurrence: None)
  Receive Date: 20110711
  Receipt Date: 20110701
  Transmission Date: 20111222
  Serious: Yes (Other)
  Sender: FDA-Public Use
  Company Number: US-BIOGENIDEC-2007BI000880

PATIENT
  Age: 42 Year
  Sex: Female

DRUGS (8)
  1. AVONEX [Suspect]
     Indication: MULTIPLE SCLEROSIS
     Route: 030
     Dates: start: 19980801, end: 20041212
  2. AVONEX [Suspect]
     Route: 030
     Dates: start: 20061128
  3. AVONEX [Suspect]
     Route: 030
  4. AVONEX [Suspect]
     Route: 030
     Dates: start: 20080214
  5. AVONEX [Suspect]
     Route: 030
     Dates: start: 20100818
  6. AVONEX [Suspect]
     Route: 030
     Dates: start: 19970309
  7. AVONEX [Suspect]
     Route: 030
     Dates: start: 20100915
  8. AVONEX [Suspect]
     Route: 030
     Dates: start: 20100715

REACTIONS (12)
  - LEUKAEMIA [None]
  - STEROID THERAPY [None]
  - MYOCARDIAL CALCIFICATION [None]
  - CONTUSION [None]
  - CEREBROVASCULAR ACCIDENT [None]
  - TYPE 2 DIABETES MELLITUS [None]
  - HYPOAESTHESIA [None]
  - MOBILITY DECREASED [None]
  - BLINDNESS [None]
  - WEIGHT DECREASED [None]
  - HEADACHE [None]
  - NAUSEA [None]
